FAERS Safety Report 16284355 (Version 1)
Quarter: 2019Q2

REPORT INFORMATION
  Report Type: Spontaneous
  Country: US (occurrence: US)
  Receive Date: 20190508
  Receipt Date: 20190508
  Transmission Date: 20190711
  Serious: No
  Sender: FDA-Public Use
  Company Number: US-TAKEDA-2019TUS026932

PATIENT
  Sex: Female

DRUGS (2)
  1. ESTROGEN [Concomitant]
     Active Substance: ESTROGENS
     Indication: OESTROGEN REPLACEMENT THERAPY
     Dosage: UNK
     Route: 067
  2. DEXILANT [Suspect]
     Active Substance: DEXLANSOPRAZOLE
     Indication: PRODUCT USED FOR UNKNOWN INDICATION
     Dosage: UNK
     Route: 048

REACTIONS (4)
  - Headache [Unknown]
  - Feeling jittery [Unknown]
  - Dizziness [Unknown]
  - Feeling hot [Unknown]
